FAERS Safety Report 7801438-2 (Version None)
Quarter: 2011Q4

REPORT INFORMATION
  Report Type: 
  Country: None (occurrence: None)
  Receive Date: 20111006
  Receipt Date: 20111006
  Transmission Date: 20120403
  Serious: Yes (Hospitalization)
  Sender: FDA-Public Use
  Company Number: None

PATIENT
  Age: 83 Year
  Sex: Female
  Weight: 55.2 kg

DRUGS (9)
  1. AMIODARONE HCL [Suspect]
     Indication: HYPERTENSION
     Dosage: 200MG BID PO CHRONIC
     Route: 048
  2. SYNTHROID [Concomitant]
  3. FISH OIL [Concomitant]
  4. TYLENOL-500 [Concomitant]
  5. MAGNESIUM OX [Concomitant]
  6. M.V.I. [Concomitant]
  7. LORAZEPAM [Concomitant]
  8. METOPROLOL SUCCINATE EXTENDED RELEASE [Suspect]
     Indication: HYPERTENSION
     Dosage: 50MG QDAY PO CHRONIC
     Route: 048
  9. MOTRIN [Concomitant]

REACTIONS (2)
  - FATIGUE [None]
  - SINUS BRADYCARDIA [None]
